FAERS Safety Report 8953235 (Version 2)
Quarter: 2013Q4

REPORT INFORMATION
  Report Type: Spontaneous
  Country: GB (occurrence: GB)
  Receive Date: 20121206
  Receipt Date: 20131014
  Transmission Date: 20140711
  Serious: Yes (Life-Threatening, Hospitalization, Disabling, Other)
  Sender: FDA-Public Use
  Company Number: GB-RANBAXY-2012R1-62713

PATIENT
  Age: 39 Year
  Sex: Male
  Weight: 82 kg

DRUGS (5)
  1. GABAPENTIN [Suspect]
     Indication: NECK PAIN
     Dosage: 900 MG, TID
     Route: 048
     Dates: start: 20120531, end: 20121016
  2. GABAPENTIN [Suspect]
     Indication: ROAD TRAFFIC ACCIDENT
  3. AMITRIPTYLINE [Concomitant]
     Indication: PAIN
     Dosage: UNK
     Route: 048
     Dates: start: 20120207, end: 20121016
  4. LANSOPRAZOLE [Concomitant]
     Indication: ANALGESIC INTERVENTION SUPPORTIVE THERAPY
     Dosage: UNK
     Route: 048
     Dates: start: 20120207, end: 20121016
  5. NAPROXEN [Concomitant]
     Indication: PAIN
     Dosage: UNK
     Route: 048
     Dates: start: 20120207, end: 20120629

REACTIONS (10)
  - Cerebrovascular accident [Not Recovered/Not Resolved]
  - Hemiparesis [Not Recovered/Not Resolved]
  - Brain midline shift [Unknown]
  - Hypotonia [Not Recovered/Not Resolved]
  - Cerebral artery occlusion [Not Recovered/Not Resolved]
  - Aphasia [Not Recovered/Not Resolved]
  - Somnolence [Unknown]
  - Headache [Unknown]
  - Cerebral infarction [Unknown]
  - Vomiting [Unknown]
